FAERS Safety Report 4950275-5 (Version None)
Quarter: 2006Q1

REPORT INFORMATION
  Report Type: 
  Country: None (occurrence: None)
  Receive Date: 20060316
  Receipt Date: 20060307
  Transmission Date: 20060701
  Serious: Yes (Hospitalization)
  Sender: FDA-Public Use
  Company Number: 222817

PATIENT
  Age: 61 Year
  Sex: Male

DRUGS (18)
  1. MABTHERA (RITUXIMAB) CONC FOR SOLUTION FOR INFUSION [Suspect]
     Indication: NON-HODGKIN'S LYMPHOMA
     Dosage: 375 MG/M2 INTRAVENOUS
     Route: 042
     Dates: start: 20051110, end: 20051110
  2. AMOXICILLIN/CLAVULANATE (AMOXICILLIN, CLAVULANATE POTASSIUM) [Suspect]
     Indication: NON-HODGKIN'S LYMPHOMA
     Dosage: 1 DF ORAL
     Route: 048
     Dates: start: 20051113
  3. VINCRISTINE [Concomitant]
  4. DOXORUBICIN HCL [Concomitant]
  5. CYCLOPHOSPHAMIDE [Concomitant]
  6. PREDNISOLONE [Concomitant]
  7. HYDROCORTISONE/TETRACYCLINE/NYSTATIN [Concomitant]
  8. POLYMYXIN B OPHTHALMIC (POLYMYXIN B SULFATE) [Concomitant]
  9. DICLOFENAC SODIUM [Concomitant]
  10. SINTROM [Concomitant]
  11. FUROSEMIDE [Concomitant]
  12. TEMAZEPAM [Concomitant]
  13. ZOPICLON [Concomitant]
  14. NYSTATIN [Concomitant]
  15. AMPHOTERICIN B [Concomitant]
  16. RANITIDINE [Concomitant]
  17. NEXIUM [Concomitant]
  18. LACTULOSE [Concomitant]

REACTIONS (5)
  - ERYTHEMA [None]
  - FATIGUE [None]
  - INFECTION [None]
  - MALAISE [None]
  - SKIN EXFOLIATION [None]
